FAERS Safety Report 9830089 (Version 1)
Quarter: 2014Q1

REPORT INFORMATION
  Report Type: Spontaneous
  Country: US (occurrence: US)
  Receive Date: 20140120
  Receipt Date: 20140120
  Transmission Date: 20141002
  Serious: No
  Sender: FDA-Public Use
  Company Number: US-BAYER-2014-000635

PATIENT
  Age: 87 Year
  Sex: Female
  Weight: 76.64 kg

DRUGS (3)
  1. ALEVE CAPLET [Suspect]
     Indication: INTERVERTEBRAL DISC PROTRUSION
     Dosage: UNK UNK, BID
     Route: 048
     Dates: start: 2013
  2. ALEVE CAPLET [Suspect]
     Indication: ARTHRALGIA
     Dosage: 2 IN THE MORNING AND 1 MORE 8 HOURS LATER. TID
     Route: 048
  3. LIPITOR [Concomitant]

REACTIONS (2)
  - Drug ineffective [None]
  - Incorrect drug administration duration [None]
